FAERS Safety Report 9274790 (Version 4)
Quarter: 2013Q2

REPORT INFORMATION
  Report Type: Spontaneous
  Country: JP (occurrence: None)
  Receive Date: 20130429
  Receipt Date: 20130523
  Transmission Date: 20140414
  Serious: Yes (Life-Threatening)
  Sender: FDA-Public Use
  Company Number: THQ2013A03176

PATIENT
  Age: 37 Year
  Sex: Female

DRUGS (24)
  1. TAKEPRON (LANSOPRAZOLE) [Suspect]
     Indication: PROPHYLAXIS AGAINST GASTROINTESTINAL ULCER
     Route: 042
     Dates: start: 20111106, end: 20111212
  2. GRAN [Suspect]
     Indication: PROPHYLAXIS
     Route: 042
     Dates: start: 20111114, end: 20111123
  3. ANTIBIOTICS [Suspect]
     Indication: NUTRITIONAL SUPPLEMENTATION
     Dosage: 0.75 MG (0.25 MG,3 IN 1 D)
     Route: 042
     Dates: start: 20111114, end: 20111205
  4. ELECTROLYTE SOLUTIONS [Concomitant]
     Indication: INFECTION
     Dosage: 0.75 MG (0.25 MG,3 IN 1 D)
  5. CALONAL [Concomitant]
  6. MORPHINE HYDROCHLORIDE [Suspect]
     Indication: PAIN
     Route: 042
     Dates: start: 20111113, end: 20111127
  7. CALCIUM FOLINATE [Suspect]
     Indication: PROPHYLAXIS
     Route: 042
     Dates: start: 20111113, end: 20111127
  8. PRIMPERAN (METOCLOPRAMIDE HYDROCHLORIDE) [Suspect]
     Indication: NAUSEA
     Dosage: 20 MG (10 MG,2 IN 1 D)
     Route: 042
     Dates: start: 20111105, end: 20111108
  9. LASIX (FUROSEMIDE) [Suspect]
     Indication: DIURETIC THERAPY
     Route: 042
     Dates: start: 20111109, end: 20111109
  10. UROMITEXAN [Suspect]
     Indication: PROPHYLAXIS
     Dosage: 1200 MG (400 MG,3 IN 1 D)
     Route: 042
     Dates: start: 20111105, end: 20111106
  11. ASPARA [Suspect]
     Indication: HYPOKALAEMIA
     Dosage: 20 MEQ (10 MEQ,2 IN 1 D)
     Route: 042
     Dates: start: 20111109, end: 20111227
  12. CEFEPIME HYDROCHLORIDE [Suspect]
     Indication: INFECTION
     Dosage: 4 MG (2 MG,2 IN 1 D)
     Route: 042
     Dates: start: 20111111, end: 20111226
  13. FRAGMIN [Suspect]
     Indication: PROPHYLAXIS
     Route: 042
     Dates: start: 20111029, end: 20111217
  14. METHOTREXATE [Suspect]
     Indication: PROPHYLAXIS AGAINST GRAFT VERSUS HOST DISEASE
     Route: 042
     Dates: start: 20111110, end: 20111110
  15. MEYLON [Suspect]
     Indication: ELECTROLYTE IMBALANCE
     Route: 042
     Dates: start: 20111104, end: 20111108
  16. ENDOXAN [Suspect]
     Indication: PREMEDICATION
     Route: 042
     Dates: start: 20111105, end: 20111106
  17. FUNGUARD [Suspect]
     Indication: INFECTION PROPHYLAXIS
     Route: 042
     Dates: start: 20111104, end: 20111229
  18. SOLU-CORTEF [Suspect]
     Indication: PREMEDICATION
     Route: 042
     Dates: start: 20111109, end: 20111109
  19. SEROTONE [Suspect]
     Indication: NAUSEA
     Dosage: 10 MG (5 MG,2 IN 1 D)
     Route: 042
     Dates: start: 20111105, end: 20111106
  20. ACICLOVIR [Suspect]
     Indication: PROPHYLAXIS
     Route: 042
     Dates: start: 20111108, end: 20111212
  21. VANCOMYCIN [Suspect]
     Indication: INFECTION
     Dosage: 2 MG (1MG,2 IN 1 D)
     Route: 042
     Dates: start: 20111115, end: 20111121
  22. PROGRAF [Suspect]
     Indication: PROPHYLAXIS AGAINST GRAFT VERSUS HOST DISEASE
     Route: 041
     Dates: start: 20111108, end: 20111119
  23. MAGNESIUM SULFATE [Suspect]
     Indication: PROPHYLAXIS
     Route: 042
     Dates: start: 20111116, end: 20120130
  24. CYLOCIDE(CYTARABINE) [Concomitant]

REACTIONS (5)
  - Posterior reversible encephalopathy syndrome [None]
  - Cerebral haemorrhage [None]
  - Varicella virus test positive [None]
  - Infection [None]
  - Respiratory arrest [None]
